FAERS Safety Report 4822867-5 (Version None)
Quarter: 2005Q4

REPORT INFORMATION
  Report Type: 
  Country: None (occurrence: None)
  Receive Date: 20051104
  Receipt Date: 20051026
  Transmission Date: 20060501
  Serious: Yes (Other)
  Sender: FDA-Public Use
  Company Number: 2005147962

PATIENT
  Sex: Female
  Weight: 86.1834 kg

DRUGS (3)
  1. DILANTN KAPSEALS [Suspect]
     Indication: CONVULSION
     Dosage: 200 MG (100 MG, 2 IN 1 D), ORAL
     Route: 048
  2. CALCIUM (CALCIUM) [Concomitant]
  3. SUDAFED 12 HOUR [Concomitant]

REACTIONS (3)
  - CATATONIA [None]
  - HYPOTHYROIDISM [None]
  - NERVOUSNESS [None]
